FAERS Safety Report 18652592 (Version 15)
Quarter: 2022Q4

REPORT INFORMATION
  Report Type: Report from Study
  Country: CA (occurrence: CA)
  Receive Date: 20201223
  Receipt Date: 20221024
  Transmission Date: 20230113
  Serious: Yes (Other)
  Sender: FDA-Public Use
  Company Number: CA-TAKEDA-CA202024033

PATIENT
  Age: 7 Year
  Sex: Male
  Weight: 32 kg

DRUGS (10)
  1. VELAGLUCERASE ALFA [Suspect]
     Active Substance: VELAGLUCERASE ALFA
     Indication: Gaucher^s disease type I
     Dosage: 1600 INTERNATIONAL UNIT, Q2WEEKS
     Route: 050
     Dates: start: 20200717
  2. VELAGLUCERASE ALFA [Suspect]
     Active Substance: VELAGLUCERASE ALFA
     Indication: Gaucher^s disease
     Dosage: 3 DOSAGE FORM, Q2WEEKS
     Route: 042
     Dates: start: 20200717
  3. VELAGLUCERASE ALFA [Suspect]
     Active Substance: VELAGLUCERASE ALFA
     Dosage: 60 INTERNATIONAL UNIT/KILOGRAM, Q2WEEKS
     Route: 042
     Dates: start: 20200717
  4. VELAGLUCERASE ALFA [Suspect]
     Active Substance: VELAGLUCERASE ALFA
     Dosage: 1600 INTERNATIONAL UNIT, Q2WEEKS
     Route: 042
     Dates: start: 20200717
  5. VELAGLUCERASE ALFA [Suspect]
     Active Substance: VELAGLUCERASE ALFA
     Dosage: 4 DOSAGE FORM, Q2WEEKS
     Route: 065
     Dates: start: 20200717
  6. VELAGLUCERASE ALFA [Suspect]
     Active Substance: VELAGLUCERASE ALFA
     Dosage: 4 DOSAGE FORM, Q2WEEKS
     Route: 050
     Dates: start: 20200717
  7. VELAGLUCERASE ALFA [Suspect]
     Active Substance: VELAGLUCERASE ALFA
     Dosage: 4 DOSAGE FORM, Q2WEEKS
     Route: 050
     Dates: start: 20200717
  8. VELAGLUCERASE ALFA [Suspect]
     Active Substance: VELAGLUCERASE ALFA
     Dosage: 4 DOSAGE FORM, Q2WEEKS
     Route: 050
     Dates: start: 20200717
  9. VELAGLUCERASE ALFA [Suspect]
     Active Substance: VELAGLUCERASE ALFA
     Dosage: 1600 UNITED STATES PHARMACOPEIA UNIT
     Route: 042
     Dates: start: 20220809, end: 20220809
  10. CEREZYME [Concomitant]
     Active Substance: IMIGLUCERASE
     Indication: Product used for unknown indication
     Dosage: UNK
     Route: 065

REACTIONS (23)
  - Catheter site haemorrhage [Unknown]
  - Swelling face [Unknown]
  - Insomnia [Unknown]
  - Poor venous access [Recovered/Resolved]
  - Weight fluctuation [Not Recovered/Not Resolved]
  - Pain in extremity [Not Recovered/Not Resolved]
  - Dry skin [Not Recovered/Not Resolved]
  - Decreased appetite [Not Recovered/Not Resolved]
  - Cough [Recovered/Resolved]
  - Crying [Recovered/Resolved]
  - Nasopharyngitis [Unknown]
  - Weight decreased [Unknown]
  - Condition aggravated [Not Recovered/Not Resolved]
  - Viral infection [Unknown]
  - Blood pressure increased [Recovered/Resolved]
  - Abdominal pain [Recovered/Resolved]
  - Bone pain [Recovered/Resolved]
  - Headache [Recovered/Resolved]
  - Fatigue [Recovered/Resolved]
  - Pain [Unknown]
  - Nausea [Recovered/Resolved]
  - Pyrexia [Recovered/Resolved]
  - Asthenia [Unknown]

NARRATIVE: CASE EVENT DATE: 20200717
